FAERS Safety Report 5201221-0 (Version None)
Quarter: 2007Q1

REPORT INFORMATION
  Report Type: 
  Country: None (occurrence: None)
  Receive Date: 20070104
  Receipt Date: 20061221
  Transmission Date: 20070707
  Serious: Yes (Other)
  Sender: FDA-Public Use
  Company Number: 2006SP008914

PATIENT
  Age: 48 Year
  Sex: Female

DRUGS (5)
  1. PEG-INTRON [Suspect]
     Indication: HEPATITIS C
     Dosage: SC
     Route: 058
     Dates: start: 20060605
  2. RIBAVIRIN [Suspect]
     Indication: HEPATITIS C
     Dosage: PO
     Route: 048
     Dates: start: 20060605
  3. HYDROCODONE BITARTRATE AND ACETAMINOPHEN [Concomitant]
  4. SOMA [Concomitant]
  5. ZOLOFT [Concomitant]

REACTIONS (6)
  - ARTHRALGIA [None]
  - BLOOD POTASSIUM DECREASED [None]
  - JOINT SWELLING [None]
  - OEDEMA PERIPHERAL [None]
  - RASH ERYTHEMATOUS [None]
  - RASH PRURITIC [None]
